FAERS Safety Report 5309909-8 (Version None)
Quarter: 2007Q2

REPORT INFORMATION
  Report Type: 
  Country: None (occurrence: None)
  Receive Date: 20070427
  Receipt Date: 20070419
  Transmission Date: 20071010
  Serious: Yes (Life-Threatening, Hospitalization)
  Sender: FDA-Public Use
  Company Number: US-ELI_LILLY_AND_COMPANY-US200704004293

PATIENT
  Age: 58 Year
  Sex: Male
  Weight: 80 kg

DRUGS (1)
  1. ALIMTA [Suspect]
     Indication: MESOTHELIOMA MALIGNANT
     Dosage: 1000 MG, UNK
     Route: 042
     Dates: start: 20070216, end: 20070216

REACTIONS (3)
  - BLOOD CREATININE INCREASED [None]
  - FEBRILE NEUTROPENIA [None]
  - THROMBOCYTOPENIA [None]
